FAERS Safety Report 5160399-8 (Version None)
Quarter: 2006Q4

REPORT INFORMATION
  Report Type: 
  Country: None (occurrence: None)
  Receive Date: 20061121
  Receipt Date: 20061114
  Transmission Date: 20070319
  Serious: Yes (Other)
  Sender: FDA-Public Use
  Company Number: 163-21880-06081373

PATIENT
  Age: 61 Year
  Sex: Female

DRUGS (2)
  1. REVLIMID                             (LENALIDOMIDE) [Suspect]
     Indication: LYMPHOPROLIFERATIVE DISORDER
     Dosage: 5 MG, 1 IN 1 D, ORAL
     Route: 048
     Dates: start: 20060531
  2. REVLIMID                             (LENALIDOMIDE) [Suspect]
     Indication: MYELODYSPLASTIC SYNDROME
     Dosage: 5 MG, 1 IN 1 D, ORAL
     Route: 048
     Dates: start: 20060531

REACTIONS (7)
  - COLITIS [None]
  - GASTROINTESTINAL HAEMORRHAGE [None]
  - HAEMOGLOBIN DECREASED [None]
  - LUNG INFILTRATION [None]
  - MARROW HYPERPLASIA [None]
  - PLATELET COUNT DECREASED [None]
  - PLEURAL EFFUSION [None]
